FAERS Safety Report 8907978 (Version 1)
Quarter: 2012Q4

REPORT INFORMATION
  Report Type: 
  Country: US (occurrence: US)
  Receive Date: 20121113
  Receipt Date: 20121113
  Transmission Date: 20130627
  Serious: No
  Sender: FDA-Public Use
  Company Number: US-AMGEN-USASP2012029816

PATIENT

DRUGS (1)
  1. ARANESP [Suspect]
     Indication: LUNG NEOPLASM MALIGNANT

REACTIONS (1)
  - Drug ineffective [Unknown]
